FAERS Safety Report 4818875-0 (Version None)
Quarter: 2005Q4

REPORT INFORMATION
  Report Type: 
  Country: None (occurrence: None)
  Receive Date: 20051031
  Receipt Date: 20051020
  Transmission Date: 20060501
  Serious: Yes (Hospitalization)
  Sender: FDA-Public Use
  Company Number: DEWYE775827JUN05

PATIENT
  Age: 63 Year
  Sex: Male

DRUGS (17)
  1. VENLAFAXINE HCL [Suspect]
     Indication: DEPRESSION
     Dosage: SEE IMAGE
     Route: 048
     Dates: end: 20050404
  2. VENLAFAXINE HCL [Suspect]
     Indication: DEPRESSION
     Dosage: SEE IMAGE
     Route: 048
     Dates: start: 20050405, end: 20050428
  3. VENLAFAXINE HCL [Suspect]
     Indication: DEPRESSION
     Dosage: SEE IMAGE
     Route: 048
     Dates: start: 20050429, end: 20050429
  4. VENLAFAXINE HCL [Suspect]
     Indication: DEPRESSION
     Dosage: SEE IMAGE
     Route: 048
     Dates: start: 20050430, end: 20050430
  5. . [Concomitant]
     Route: 048
  6. . [Concomitant]
  7. . [Concomitant]
  8. METOPROLOL SUCCINATE [Suspect]
     Dosage: 47.5 MG
     Route: 048
     Dates: start: 20050405
  9. MIRTAZAPINE [Suspect]
     Dosage: SEE IMAGE
     Route: 048
     Dates: start: 20050405, end: 20050417
  10. MIRTAZAPINE [Suspect]
     Dosage: SEE IMAGE
     Route: 048
     Dates: start: 20050418
  11. . [Concomitant]
     Route: 048
  12. TRIMIPRAMINE MALEATE [Suspect]
     Dosage: SEE IMAGE
     Route: 048
     Dates: start: 20050405, end: 20050417
  13. TRIMIPRAMINE MALEATE [Suspect]
     Dosage: SEE IMAGE
     Route: 048
     Dates: start: 20050418, end: 20050428
  14. . [Concomitant]
  15. ZYPREXA [Suspect]
     Dosage: 20 MG
     Route: 048
     Dates: start: 20050405
  16. LITHIUM CARBONATE [Concomitant]
  17. LORAZEPAM [Concomitant]

REACTIONS (5)
  - ALANINE AMINOTRANSFERASE INCREASED [None]
  - ASPARTATE AMINOTRANSFERASE INCREASED [None]
  - DRUG INTERACTION [None]
  - GAMMA-GLUTAMYLTRANSFERASE INCREASED [None]
  - HEPATIC ENZYME INCREASED [None]
